FAERS Safety Report 6160274-6 (Version None)
Quarter: 2009Q2

REPORT INFORMATION
  Report Type: 
  Country: None (occurrence: None)
  Receive Date: 20090416
  Receipt Date: 20090416
  Transmission Date: 20091009
  Serious: Yes (Other)
  Sender: FDA-Public Use
  Company Number: None

PATIENT
  Age: 7 Year
  Sex: Male
  Weight: 22.6799 kg

DRUGS (1)
  1. DAYTRANA [Suspect]
     Indication: ATTENTION DEFICIT/HYPERACTIVITY DISORDER
     Dosage: 10 MG/9HR DAILY TRANSDERMAL PERIODIC FOR ABOUT 1 YR
     Route: 062
     Dates: start: 20080201, end: 20090415

REACTIONS (5)
  - APPLICATION SITE REACTION [None]
  - PRODUCT QUALITY ISSUE [None]
  - RASH [None]
  - SKIN DISORDER [None]
  - WRONG TECHNIQUE IN DRUG USAGE PROCESS [None]
